FAERS Safety Report 8235616 (Version 2)
Quarter: 2012Q4

REPORT INFORMATION
  Report Type: 
  Country: DK (occurrence: DK)
  Receive Date: 20111108
  Receipt Date: 20121029
  Transmission Date: 20130627
  Serious: Yes (Other)
  Sender: FDA-Public Use
  Company Number: PHHY2011DK097164

PATIENT
  Age: 70 Year
  Sex: Female

DRUGS (1)
  1. ACLASTA [Suspect]
     Indication: OSTEOPOROSIS
     Dosage: 5 mg/ 100 ml, yearly
     Route: 042
     Dates: start: 20110909

REACTIONS (1)
  - Azotaemia [Recovering/Resolving]
